FAERS Safety Report 11999653 (Version 1)
Quarter: 2016Q1

REPORT INFORMATION
  Report Type: Other
  Country: US (occurrence: US)
  Receive Date: 20160204
  Receipt Date: 20160204
  Transmission Date: 20160526
  Serious: Yes (Life-Threatening)
  Sender: FDA-Public Use
  Company Number: US-JUBILANT GENERICS LIMITED-1047301

PATIENT
  Age: 37 Year
  Sex: Female

DRUGS (2)
  1. OLANZAPINE. [Suspect]
     Active Substance: OLANZAPINE
  2. FENTANYL. [Concomitant]
     Active Substance: FENTANYL

REACTIONS (2)
  - Drug screen positive [None]
  - Respiratory failure [Unknown]

NARRATIVE: CASE EVENT DATE: 20160125
